FAERS Safety Report 7643698-7 (Version None)
Quarter: 2011Q3

REPORT INFORMATION
  Report Type: 
  Country: None (occurrence: None)
  Receive Date: 20110722
  Receipt Date: 20110714
  Transmission Date: 20111222
  Serious: Yes (Hospitalization)
  Sender: FDA-Public Use
  Company Number: DKLU1071972

PATIENT
  Age: 9 Month
  Sex: Female

DRUGS (3)
  1. PHENOBARBITAL TAB [Concomitant]
  2. SABRIL [Suspect]
     Indication: INFANTILE SPASMS
     Dosage: 250 MG MILLIGRAM(S), 2 IN 1 D, ORAL; 175 MG MILLIGRAM(S), 2 IN 1 D, ORAL
     Route: 048
     Dates: start: 20110701
  3. ACTH [Concomitant]

REACTIONS (5)
  - SOMNOLENCE [None]
  - BRONCHIAL HYPERREACTIVITY [None]
  - HYPOPHAGIA [None]
  - CHRONIC OBSTRUCTIVE PULMONARY DISEASE [None]
  - WEIGHT DECREASED [None]
